FAERS Safety Report 4314427-X (Version None)
Quarter: 2004Q1

REPORT INFORMATION
  Report Type: 
  Country: None (occurrence: None)
  Receive Date: 20040308
  Receipt Date: 20040302
  Transmission Date: 20041129
  Serious: Yes (Death)
  Sender: FDA-Public Use
  Company Number: TNZUS200400012

PATIENT
  Sex: Female

DRUGS (1)
  1. INNOHEP [Suspect]
     Dosage: 13000 IU (ONCE), SUBCUTANEOUS
     Route: 058
     Dates: start: 20031101, end: 20031101

REACTIONS (2)
  - MYOCARDIAL INFARCTION [None]
  - VOMITING [None]
